FAERS Safety Report 7606206-2 (Version None)
Quarter: 2011Q3

REPORT INFORMATION
  Report Type: 
  Country: None (occurrence: None)
  Receive Date: 20110713
  Receipt Date: 20110628
  Transmission Date: 20111222
  Serious: Yes (Hospitalization, Other)
  Sender: FDA-Public Use
  Company Number: US-BAYER-2011-018431

PATIENT
  Sex: Female
  Weight: 84 kg

DRUGS (13)
  1. ACETAMINOPHEN [Concomitant]
     Route: 048
  2. YAZ [Suspect]
     Indication: UTERINE HAEMORRHAGE
     Dosage: UNK
     Dates: start: 20090304, end: 20090306
  3. FERRITIN [Concomitant]
     Dosage: UNK
     Route: 042
     Dates: start: 20090502
  4. CIPROFLOXACIN [Concomitant]
     Route: 048
  5. FOLIC ACID [Concomitant]
     Dosage: UNK
     Route: 048
     Dates: start: 20090502
  6. LASIX [Concomitant]
     Dosage: 20 MG, UNK
     Route: 042
     Dates: start: 20090502
  7. PROMETHAZINE [Concomitant]
     Indication: VOMITING
  8. METRONIDAZOLE [Concomitant]
     Indication: VULVOVAGINITIS TRICHOMONAL
     Dosage: UNK
     Route: 048
     Dates: start: 20090502
  9. ZOFRAN [Concomitant]
     Indication: NAUSEA
     Route: 042
  10. PROMETHAZINE [Concomitant]
     Indication: NAUSEA
     Dosage: UNK
     Dates: start: 20090502
  11. PREMARIN [Concomitant]
     Indication: UTERINE HAEMORRHAGE
     Dosage: UNK
     Route: 042
     Dates: start: 20090502
  12. FERROUS SULFATE TAB [Concomitant]
     Dosage: UNK
     Route: 048
  13. ZOFRAN [Concomitant]
     Indication: VOMITING

REACTIONS (4)
  - PAIN IN EXTREMITY [None]
  - DEEP VEIN THROMBOSIS [None]
  - PULMONARY EMBOLISM [None]
  - INJURY [None]
